FAERS Safety Report 9285189 (Version 1)
Quarter: 2013Q2

REPORT INFORMATION
  Report Type: Spontaneous
  Country: US (occurrence: US)
  Receive Date: 20130513
  Receipt Date: 20130513
  Transmission Date: 20140414
  Serious: No
  Sender: FDA-Public Use
  Company Number: US-BAYER-2013-056080

PATIENT
  Sex: Female
  Weight: 66 kg

DRUGS (9)
  1. BETASERON [Suspect]
     Indication: RELAPSING-REMITTING MULTIPLE SCLEROSIS
     Dosage: 0.25 MG, QOD
     Route: 058
     Dates: end: 20130417
  2. GILENYA [Concomitant]
     Dosage: 0.5 MG, UNK
  3. COD LIVER OIL [Concomitant]
  4. B12 [Concomitant]
     Dosage: 1 MG, UNK
  5. B6-VITAMIIN NS [Concomitant]
  6. FOLIC ACID [Concomitant]
     Dosage: 20 MG, UNK
  7. VITAMIN D3 [Concomitant]
     Dosage: 1000 U, UNK
  8. CALCIUM [Concomitant]
  9. LAMOTRIGINE [Concomitant]
     Dosage: 25 MG, UNK

REACTIONS (3)
  - Injection site scar [Unknown]
  - Chills [Unknown]
  - Headache [Unknown]
